FAERS Safety Report 6974245-0 (Version None)
Quarter: 2010Q3

REPORT INFORMATION
  Report Type: 
  Country: None (occurrence: None)
  Receive Date: 20100909
  Receipt Date: 20080520
  Transmission Date: 20110219
  Serious: No
  Sender: FDA-Public Use
  Company Number: US-WYE-H04223308

PATIENT
  Sex: Female
  Weight: 63.56 kg

DRUGS (2)
  1. PROTONIX [Suspect]
     Indication: GASTROOESOPHAGEAL REFLUX DISEASE
     Dosage: 40 MG ONCE
     Route: 048
     Dates: start: 20080519, end: 20080519
  2. LORATADINE [Concomitant]

REACTIONS (8)
  - BACK PAIN [None]
  - CHILLS [None]
  - COUGH [None]
  - DYSPHAGIA [None]
  - EAR PAIN [None]
  - ORAL PRURITUS [None]
  - OROPHARYNGEAL PAIN [None]
  - RHINORRHOEA [None]
